FAERS Safety Report 4639639-7 (Version None)
Quarter: 2005Q1

REPORT INFORMATION
  Report Type: 
  Country: None (occurrence: None)
  Receive Date: 20050328
  Receipt Date: 20041220
  Transmission Date: 20050727
  Serious: No
  Sender: FDA-Public Use
  Company Number: USA041286584

PATIENT
  Age: 7 Year
  Sex: Male

DRUGS (2)
  1. STRATTERA [Suspect]
     Indication: ATTENTION DEFICIT/HYPERACTIVITY DISORDER
     Dosage: 40 MG DAY
     Dates: start: 20041213
  2. RITALIN LA [Concomitant]

REACTIONS (4)
  - HYPERSOMNIA [None]
  - MUSCLE TWITCHING [None]
  - SOMNOLENCE [None]
  - STOMACH DISCOMFORT [None]
